FAERS Safety Report 25309022 (Version 1)
Quarter: 2025Q2

REPORT INFORMATION
  Report Type: Spontaneous
  Country: US (occurrence: US)
  Receive Date: 20250513
  Receipt Date: 20250513
  Transmission Date: 20250716
  Serious: No
  Sender: SANOFI AVENTIS
  Company Number: US-SA-2025SA136233

PATIENT
  Age: 86 Year
  Sex: Male

DRUGS (4)
  1. DUPIXENT [Suspect]
     Active Substance: DUPILUMAB
     Indication: Dermatitis allergic
     Route: 058
     Dates: start: 20250417, end: 20250417
  2. TAMSULOSIN [Concomitant]
     Active Substance: TAMSULOSIN
  3. FUROSEMIDE [Concomitant]
     Active Substance: FUROSEMIDE
  4. ATORVASTATIN [Concomitant]
     Active Substance: ATORVASTATIN

REACTIONS (1)
  - Rash [Unknown]

NARRATIVE: CASE EVENT DATE: 20250401
